FAERS Safety Report 10084740 (Version 1)
Quarter: 2014Q2

REPORT INFORMATION
  Report Type: Spontaneous
  Country: CN (occurrence: CN)
  Receive Date: 20140417
  Receipt Date: 20140417
  Transmission Date: 20141212
  Serious: Yes (Hospitalization)
  Sender: FDA-Public Use
  Company Number: CN-GLAXOSMITHKLINE-B0986474A

PATIENT
  Age: 13 Year
  Sex: Female
  Weight: 49 kg

DRUGS (1)
  1. VENTOLIN [Suspect]
     Indication: ASTHMA
     Dosage: .6ML PER DAY
     Route: 055
     Dates: start: 20130601, end: 20130601

REACTIONS (1)
  - Tremor [Recovered/Resolved]
